FAERS Safety Report 11140672 (Version 1)
Quarter: 2015Q2

REPORT INFORMATION
  Report Type: Spontaneous
  Country: US (occurrence: US)
  Receive Date: 20150527
  Receipt Date: 20150527
  Transmission Date: 20150821
  Serious: No
  Sender: FDA-Public Use
  Company Number: US-MALLINCKRODT-QSC-2014-0711

PATIENT
  Age: 23 Year
  Sex: Female

DRUGS (5)
  1. OMEPRAZOLE                         /00661202/ [Concomitant]
     Dosage: 40 MG, QD
     Route: 048
  2. ZYRTEC [Concomitant]
     Active Substance: CETIRIZINE HYDROCHLORIDE
     Dosage: 10 MG, QD
     Route: 048
  3. TRAMADOL [Concomitant]
     Active Substance: TRAMADOL
     Dosage: UNK, PRN
  4. H.P. ACTHAR [Suspect]
     Active Substance: CORTICOTROPIN
     Indication: LUPUS NEPHRITIS
     Dosage: 80 UNITS, BIW
     Route: 058
     Dates: start: 20140924
  5. CELLCEPT [Concomitant]
     Active Substance: MYCOPHENOLATE MOFETIL\MYCOPHENOLATE MOFETIL HYDROCHLORIDE
     Dosage: 1 DAILY ALTERNATING WITH TWO DAILY, QOD

REACTIONS (4)
  - Abdominal discomfort [Unknown]
  - Pollakiuria [Unknown]
  - Fluid retention [Unknown]
  - Insomnia [Unknown]

NARRATIVE: CASE EVENT DATE: 201409
